FAERS Safety Report 5003929-9 (Version None)
Quarter: 2006Q2

REPORT INFORMATION
  Report Type: 
  Country: None (occurrence: None)
  Receive Date: 20060515
  Receipt Date: 20060515
  Transmission Date: 20061013
  Serious: No
  Sender: FDA-Public Use
  Company Number: None

PATIENT
  Sex: Female

DRUGS (1)
  1. ENALAPRIL [Suspect]
     Indication: BLOOD PRESSURE INCREASED
     Dosage: MOUTH
     Route: 048

REACTIONS (1)
  - SWELLING FACE [None]
